FAERS Safety Report 24224466 (Version 3)
Quarter: 2024Q4

REPORT INFORMATION
  Report Type: Spontaneous
  Country: ES (occurrence: ES)
  Receive Date: 20240819
  Receipt Date: 20241107
  Transmission Date: 20250115
  Serious: Yes (Hospitalization, Other)
  Sender: ELI LILLY AND COMPANY
  Company Number: None

PATIENT
  Age: 87 Year
  Sex: Male

DRUGS (5)
  1. INSULIN GLARGINE [Interacting]
     Active Substance: INSULIN GLARGINE
     Indication: Hyperglycaemic crisis
     Dosage: 7 INTERNATIONAL UNIT, DAILY
     Route: 058
     Dates: start: 20240621
  2. INSULIN ASPART [Interacting]
     Active Substance: INSULIN ASPART
     Indication: Hyperglycaemic crisis
     Dosage: 3 INTERNATIONAL UNIT, EVERY 8 HRS
     Route: 058
     Dates: start: 20240621
  3. LANTUS [Suspect]
     Active Substance: INSULIN GLARGINE
     Indication: Type 2 diabetes mellitus
     Dosage: UNK UNK, UNKNOWN
     Route: 058
  4. TOUJEO [Suspect]
     Active Substance: INSULIN GLARGINE
     Indication: Type 2 diabetes mellitus
     Dosage: 34 INTERNATIONAL UNIT, UNKNOWN
     Route: 058
  5. INSULIN HUMAN [Concomitant]
     Active Substance: INSULIN HUMAN
     Indication: Type 2 diabetes mellitus

REACTIONS (8)
  - Condition aggravated [Recovered/Resolved]
  - Type 2 diabetes mellitus [Recovered/Resolved]
  - Diabetes mellitus inadequate control [Recovering/Resolving]
  - Pneumonia bacterial [Recovered/Resolved]
  - Dehydration [Recovered/Resolved]
  - Hypoglycaemia [Recovered/Resolved]
  - Blood glucose increased [Recovering/Resolving]
  - Drug interaction [Unknown]

NARRATIVE: CASE EVENT DATE: 20240101
